FAERS Safety Report 9027100 (Version 2)
Quarter: 2013Q1

REPORT INFORMATION
  Report Type: Spontaneous
  Country: US (occurrence: US)
  Receive Date: 20130123
  Receipt Date: 20130307
  Transmission Date: 20140127
  Serious: No
  Sender: FDA-Public Use
  Company Number: US-PFIZER INC-2013028354

PATIENT
  Age: 58 Year
  Sex: Female
  Weight: 51 kg

DRUGS (7)
  1. LYRICA [Suspect]
     Indication: FIBROMYALGIA
     Dosage: 100 MG, 3X/DAY
  2. LYRICA [Suspect]
     Dosage: 100 MG, 2X/DAY
  3. LYRICA [Suspect]
     Dosage: 100 MG,DAILY
     Dates: start: 2012, end: 20130118
  4. AMPHETAM ASP/AMPHETAM SULF/DEXTROAMPHET SACC/DEXTROAMPHET SULF/ [Concomitant]
     Indication: DISTURBANCE IN ATTENTION
     Dosage: 20 MG, 3X/DAY
  5. AMPHETAM ASP/AMPHETAM SULF/DEXTROAMPHET SACC/DEXTROAMPHET SULF/ [Concomitant]
     Indication: SLEEP DISORDER
  6. FUROSEMIDE [Concomitant]
     Indication: FLUID RETENTION
     Dosage: 20 MG, DAILY
  7. CAFFEINE/CODEINE/PARACETAMOL [Concomitant]
     Dosage: UNK

REACTIONS (11)
  - Intentional drug misuse [Unknown]
  - Somnolence [Unknown]
  - Feeling jittery [Unknown]
  - Muscle twitching [Unknown]
  - Feeling abnormal [Unknown]
  - Pruritus [Unknown]
  - Agitation [Unknown]
  - Nervousness [Unknown]
  - Drug ineffective [Unknown]
  - Liver disorder [Unknown]
  - Blood cholesterol increased [Unknown]
